FAERS Safety Report 13268749 (Version 1)
Quarter: 2017Q1

REPORT INFORMATION
  Report Type: Spontaneous
  Country: US (occurrence: US)
  Receive Date: 20170224
  Receipt Date: 20170224
  Transmission Date: 20170428
  Serious: Yes (Other)
  Sender: FDA-Public Use
  Company Number: None

PATIENT
  Age: 52 Year
  Sex: Female
  Weight: 80.1 kg

DRUGS (9)
  1. CHILDRENS ASPIRIN [Concomitant]
     Active Substance: ASPIRIN
  2. MULTI VITAMIN [Concomitant]
     Active Substance: VITAMINS
  3. LISINOPRIL 2.5 MG SANDOZ [Suspect]
     Active Substance: LISINOPRIL
     Route: 048
     Dates: start: 20170103
  4. ATORVASTATIN [Concomitant]
     Active Substance: ATORVASTATIN
  5. LEXAPRO [Concomitant]
     Active Substance: ESCITALOPRAM OXALATE
  6. CALCIUM [Concomitant]
     Active Substance: CALCIUM
  7. OXYBUTNIN 10MG ER TABS 1 DAILY AT BEDTIME [Concomitant]
     Active Substance: OXYBUTYNIN
  8. JENTADUETO [Concomitant]
     Active Substance: LINAGLIPTIN\METFORMIN HYDROCHLORIDE
  9. FISH OIL [Concomitant]
     Active Substance: FISH OIL

REACTIONS (1)
  - Cough [None]

NARRATIVE: CASE EVENT DATE: 20170103
